FAERS Safety Report 6818981-5 (Version None)
Quarter: 2010Q3

REPORT INFORMATION
  Report Type: 
  Country: None (occurrence: None)
  Receive Date: 20100701
  Receipt Date: 20100617
  Transmission Date: 20110219
  Serious: Yes (Hospitalization)
  Sender: FDA-Public Use
  Company Number: 2009SP016504

PATIENT
  Sex: Male

DRUGS (7)
  1. PEG-INTRON [Suspect]
     Indication: HEPATITIS C
     Dates: start: 20081128
  2. RIBAVIRIN [Suspect]
     Indication: HEPATITIS C
     Dosage: 4 DF;QD
     Dates: start: 20081128
  3. BOCEPREVIR (SCH-503034) [Suspect]
     Indication: HEPATITIS C
     Dosage: 12 DF;QD
     Dates: start: 20081224
  4. RISPERIDONE [Concomitant]
  5. ETUMINE [Concomitant]
  6. INVEGA [Concomitant]
  7. REMERGON [Concomitant]

REACTIONS (4)
  - ALCOHOL ABUSE [None]
  - ANXIETY [None]
  - CONDITION AGGRAVATED [None]
  - DEPRESSION [None]
